FAERS Safety Report 8894976 (Version 1)
Quarter: 2012Q4

REPORT INFORMATION
  Report Type: 
  Country: GB (occurrence: GB)
  Receive Date: 20121108
  Receipt Date: 20121108
  Transmission Date: 20130627
  Serious: Yes (Other)
  Sender: FDA-Public Use
  Company Number: PHFR2012GB005784

PATIENT
  Age: 35 Year
  Sex: Male

DRUGS (2)
  1. CLOZAPINE [Suspect]
     Indication: SCHIZOPHRENIA, PARANOID TYPE
     Dosage: 750 mg, QD
     Route: 048
     Dates: start: 2002
  2. EPILIM [Suspect]
     Dosage: 700 mg, QD
     Route: 048
     Dates: start: 2002

REACTIONS (3)
  - Hidradenitis [Unknown]
  - Groin abscess [Unknown]
  - Breast abscess [Unknown]
